FAERS Safety Report 13063477 (Version 1)
Quarter: 2016Q4

REPORT INFORMATION
  Report Type: Report from Study
  Country: US (occurrence: US)
  Receive Date: 20161227
  Receipt Date: 20161227
  Transmission Date: 20170207
  Serious: Yes (Other)
  Sender: FDA-Public Use
  Company Number: US-ROCHE-1872513

PATIENT

DRUGS (2)
  1. RITUXIMAB [Suspect]
     Active Substance: RITUXIMAB
     Indication: NON-HODGKIN^S LYMPHOMA
     Dosage: (4 DOSES);
     Route: 042
  2. URELUMAB [Suspect]
     Active Substance: URELUMAB
     Indication: NON-HODGKIN^S LYMPHOMA
     Route: 065

REACTIONS (1)
  - Alanine aminotransferase increased [Unknown]
